FAERS Safety Report 5538240-0 (Version None)
Quarter: 2007Q4

REPORT INFORMATION
  Report Type: 
  Country: None (occurrence: None)
  Receive Date: 20071207
  Receipt Date: 20071205
  Transmission Date: 20080405
  Serious: Yes (Disabling)
  Sender: FDA-Public Use
  Company Number: GB-MERCK-0712GBR00025

PATIENT
  Age: 75 Year
  Sex: Female
  Weight: 92 kg

DRUGS (3)
  1. ANASTROZOLE [Concomitant]
     Route: 048
     Dates: start: 20061029
  2. OMEPRAZOLE [Concomitant]
     Indication: HIATUS HERNIA
     Route: 048
     Dates: start: 19940621
  3. FOSAMAX [Suspect]
     Indication: OSTEOPOROSIS
     Route: 048
     Dates: start: 20070828, end: 20071025

REACTIONS (3)
  - PHOTOPSIA [None]
  - VISION BLURRED [None]
  - VITREOUS HAEMORRHAGE [None]
